FAERS Safety Report 8180399-3 (Version None)
Quarter: 2012Q1

REPORT INFORMATION
  Report Type: 
  Country: None (occurrence: None)
  Receive Date: 20120229
  Receipt Date: 20120217
  Transmission Date: 20120608
  Serious: Yes (Hospitalization, Other)
  Sender: FDA-Public Use
  Company Number: CL-391-2012

PATIENT
  Age: 44 Year
  Sex: Female

DRUGS (4)
  1. FENTANYL [Suspect]
     Dosage: 125MG
  2. BUPROPION HCL [Concomitant]
  3. PROPRANOLOL [Concomitant]
  4. MIDAZOLAM HCL [Suspect]
     Dosage: 4 MG

REACTIONS (2)
  - SOMATOFORM DISORDER [None]
  - SOMNOLENCE [None]
